FAERS Safety Report 9425782 (Version 2)
Quarter: 2013Q3

REPORT INFORMATION
  Report Type: Spontaneous
  Country: US (occurrence: US)
  Receive Date: 20130729
  Receipt Date: 20130805
  Transmission Date: 20140515
  Serious: Yes (Other)
  Sender: FDA-Public Use
  Company Number: GB-PFIZER INC-2013214340

PATIENT
  Age: 14 Year
  Sex: Female

DRUGS (1)
  1. VANCOMYCIN HCL [Suspect]
     Indication: CLOSTRIDIUM DIFFICILE INFECTION
     Dosage: 250 MG, 4X/DAY, (2 GRAMS 1.73 M2/DAY OR 35 MG/KGLDAY).
     Route: 048

REACTIONS (2)
  - Toxic encephalopathy [Recovered/Resolved]
  - Drug level increased [Recovered/Resolved]
